FAERS Safety Report 24963739 (Version 1)
Quarter: 2025Q1

REPORT INFORMATION
  Report Type: Spontaneous
  Country: US (occurrence: US)
  Receive Date: 20250213
  Receipt Date: 20250213
  Transmission Date: 20250409
  Serious: No
  Sender: ALEXION PHARMACEUTICALS
  Company Number: US-AstraZeneca-CH-00803069AP

PATIENT

DRUGS (1)
  1. BYDUREON BCISE [Suspect]
     Active Substance: EXENATIDE

REACTIONS (9)
  - Adverse drug reaction [Unknown]
  - Chills [Unknown]
  - Body temperature decreased [Unknown]
  - Wrong technique in device usage process [Unknown]
  - Device issue [Unknown]
  - Device ineffective [Unknown]
  - Incorrect dose administered [Unknown]
  - Device use issue [Unknown]
  - Device malfunction [Unknown]
